FAERS Safety Report 22129329 (Version 1)
Quarter: 2023Q1

REPORT INFORMATION
  Report Type: Report from Study
  Country: US (occurrence: None)
  Receive Date: 20230323
  Receipt Date: 20230323
  Transmission Date: 20230417
  Serious: Yes (Hospitalization)
  Sender: FDA-Public Use
  Company Number: 2023A063686

PATIENT
  Age: 64 Year
  Sex: Female

DRUGS (2)
  1. LYNPARZA [Suspect]
     Active Substance: OLAPARIB
     Indication: Ovarian cancer
     Route: 048
     Dates: start: 201902
  2. LYNPARZA [Suspect]
     Active Substance: OLAPARIB
     Indication: Uterine cancer
     Route: 048
     Dates: start: 201902

REACTIONS (10)
  - Palpitations [Unknown]
  - Dyspnoea [Unknown]
  - Type 2 diabetes mellitus [Unknown]
  - Thyroid function test abnormal [Unknown]
  - Hypertension [Unknown]
  - Weight increased [Unknown]
  - Blood thyroid stimulating hormone decreased [Unknown]
  - Pancreatic disorder [Unknown]
  - General physical health deterioration [Unknown]
  - Off label use [Unknown]

NARRATIVE: CASE EVENT DATE: 20220101
